FAERS Safety Report 15429338 (Version 3)
Quarter: 2019Q4

REPORT INFORMATION
  Report Type: Spontaneous
  Country: US (occurrence: US)
  Receive Date: 20180926
  Receipt Date: 20191206
  Transmission Date: 20200122
  Serious: Yes (Death, Hospitalization, Other)
  Sender: FDA-Public Use
  Company Number: US-ASTRAZENECA-2018SF20215

PATIENT
  Age: 24357 Day
  Sex: Female

DRUGS (19)
  1. KOMBIGLYZE XR [Suspect]
     Active Substance: METFORMIN HYDROCHLORIDE\SAXAGLIPTIN HYDROCHLORIDE
     Indication: TYPE 2 DIABETES MELLITUS
     Route: 048
     Dates: start: 201404, end: 201801
  2. NORCO [Concomitant]
     Active Substance: ACETAMINOPHEN\HYDROCODONE BITARTRATE
  3. KOMBIGLYZE XR [Suspect]
     Active Substance: METFORMIN HYDROCHLORIDE\SAXAGLIPTIN HYDROCHLORIDE
     Indication: TYPE 2 DIABETES MELLITUS
     Route: 048
     Dates: start: 20140522, end: 20140622
  4. AZELASTINE. [Concomitant]
     Active Substance: AZELASTINE HYDROCHLORIDE
  5. FLUTICASONE. [Concomitant]
     Active Substance: FLUTICASONE
  6. GLIPIZIDE. [Concomitant]
     Active Substance: GLIPIZIDE
  7. WALGREENS [Concomitant]
  8. ONGLYZA [Suspect]
     Active Substance: SAXAGLIPTIN HYDROCHLORIDE
     Indication: TYPE 2 DIABETES MELLITUS
     Route: 048
     Dates: start: 20150731, end: 20180127
  9. SPIRIVA [Concomitant]
     Active Substance: TIOTROPIUM BROMIDE MONOHYDRATE
  10. LANTUS [Concomitant]
     Active Substance: INSULIN GLARGINE
  11. MUPIROCIN. [Concomitant]
     Active Substance: MUPIROCIN
  12. ONGLYZA [Suspect]
     Active Substance: SAXAGLIPTIN HYDROCHLORIDE
     Indication: TYPE 2 DIABETES MELLITUS
     Route: 048
     Dates: start: 201404, end: 201801
  13. PROVENTIL [Concomitant]
     Active Substance: ALBUTEROL
  14. ELAVIL [Concomitant]
     Active Substance: AMITRIPTYLINE HYDROCHLORIDE
  15. LOVASTATIN. [Concomitant]
     Active Substance: LOVASTATIN
  16. TRAMADOL. [Concomitant]
     Active Substance: TRAMADOL
  17. LISINOPRIL. [Concomitant]
     Active Substance: LISINOPRIL
  18. CELECOXIB. [Concomitant]
     Active Substance: CELECOXIB
  19. PROCTOCORT [Concomitant]
     Active Substance: HYDROCORTISONE

REACTIONS (6)
  - Cardiac failure [Unknown]
  - Aortic valve stenosis [Fatal]
  - Ischaemic cardiomyopathy [Fatal]
  - Aortic valve incompetence [Fatal]
  - Coronary artery disease [Fatal]
  - Cardiac failure congestive [Unknown]

NARRATIVE: CASE EVENT DATE: 20160811
